FAERS Safety Report 19758836 (Version 1)
Quarter: 2021Q3

REPORT INFORMATION
  Report Type: Report from Study
  Country: None (occurrence: US)
  Receive Date: 20210827
  Receipt Date: 20210827
  Transmission Date: 20211014
  Serious: Yes (Hospitalization)
  Sender: FDA-Public Use
  Company Number: US-ABBVIE-21K-163-4054328-00

PATIENT
  Age: 39 Year
  Sex: Female

DRUGS (2)
  1. HUMIRA [Suspect]
     Active Substance: ADALIMUMAB
     Indication: CROHN^S DISEASE
     Dosage: DAY 1
     Route: 058
     Dates: start: 20210813, end: 20210813
  2. HUMIRA [Suspect]
     Active Substance: ADALIMUMAB
     Indication: CROHN^S DISEASE
     Route: 058

REACTIONS (15)
  - Gastrointestinal inflammation [Unknown]
  - Vocal cord paralysis [Unknown]
  - Fear [Unknown]
  - Gastric haemorrhage [Unknown]
  - Loss of personal independence in daily activities [Unknown]
  - Insomnia [Unknown]
  - Lung disorder [Unknown]
  - Weight decreased [Unknown]
  - Incontinence [Unknown]
  - Depressed mood [Unknown]
  - Asthenia [Unknown]
  - Diarrhoea [Unknown]
  - Pneumonia [Unknown]
  - Impaired gastric emptying [Unknown]
  - Flatulence [Unknown]

NARRATIVE: CASE EVENT DATE: 202107
